FAERS Safety Report 16608136 (Version 1)
Quarter: 2019Q3

REPORT INFORMATION
  Report Type: Report from Study
  Country: US (occurrence: US)
  Receive Date: 20190722
  Receipt Date: 20190722
  Transmission Date: 20191004
  Serious: Yes (Hospitalization)
  Sender: FDA-Public Use
  Company Number: US-UCBSA-014589

PATIENT
  Age: 66 Year
  Sex: Female
  Weight: 87.2 kg

DRUGS (5)
  1. METHOTREXATE. [Concomitant]
     Active Substance: METHOTREXATE
     Dosage: 10 PILLS WEEKLY
  2. SYNTHROID [Concomitant]
     Active Substance: LEVOTHYROXINE SODIUM
  3. FOLIC ACID. [Concomitant]
     Active Substance: FOLIC ACID
  4. FOSAMAX [Concomitant]
     Active Substance: ALENDRONATE SODIUM
     Dosage: 70 MG, WEEKLY (QW)
  5. CERTOLIZUMAB PEGOL VS PLACEBO [Suspect]
     Active Substance: CERTOLIZUMAB PEGOL
     Indication: RHEUMATOID ARTHRITIS
     Dosage: UNKNOWN DOSE
     Route: 058

REACTIONS (1)
  - Pneumonia [Recovered/Resolved]

NARRATIVE: CASE EVENT DATE: 20100623
